FAERS Safety Report 25190970 (Version 1)
Quarter: 2025Q2

REPORT INFORMATION
  Report Type: Spontaneous
  Country: FR (occurrence: FR)
  Receive Date: 20250411
  Receipt Date: 20250411
  Transmission Date: 20250717
  Serious: Yes (Hospitalization)
  Sender: TEVA
  Company Number: None

PATIENT
  Age: 72 Year
  Sex: Female
  Weight: 66 kg

DRUGS (3)
  1. NAPROXEN [Interacting]
     Active Substance: NAPROXEN
     Indication: Back pain
     Dosage: 550MG 2 TIMES A DAY
     Route: 048
     Dates: start: 202502, end: 202502
  2. OXAZEPAM [Concomitant]
     Active Substance: OXAZEPAM
     Indication: Product used for unknown indication
     Dosage: 10MG IN THE EVENING
     Route: 048
     Dates: start: 2018
  3. TERALITHE [Interacting]
     Active Substance: LITHIUM CARBONATE
     Indication: Bipolar disorder
     Dosage: TERALITHE LP PROLONGED RELEASE SCORED TABLET
     Route: 048
     Dates: start: 2018, end: 20250225

REACTIONS (6)
  - Accidental overdose [Recovered/Resolved]
  - Disorientation [Recovered/Resolved]
  - Drug interaction [Recovered/Resolved]
  - Decreased appetite [Recovered/Resolved]
  - Tremor [Recovered/Resolved]
  - Decreased appetite [Recovered/Resolved]

NARRATIVE: CASE EVENT DATE: 20250201
